FAERS Safety Report 10061194 (Version 3)
Quarter: 2014Q3

REPORT INFORMATION
  Report Type: Spontaneous
  Country: BR (occurrence: BR)
  Receive Date: 20140407
  Receipt Date: 20140729
  Transmission Date: 20150326
  Serious: Yes (Other)
  Sender: FDA-Public Use
  Company Number: BR-ROCHE-1374905

PATIENT
  Age: 13 Year
  Sex: Male
  Weight: 40 kg

DRUGS (9)
  1. ACTEMRA [Suspect]
     Active Substance: TOCILIZUMAB
     Indication: JUVENILE IDIOPATHIC ARTHRITIS
     Dosage: EV, TOTAL OF 280 MG MONTHLY
     Route: 042
     Dates: start: 20130214
  2. CHOLECALCIFEROL [Concomitant]
     Active Substance: CHOLECALCIFEROL
     Route: 048
  3. ACTEMRA [Suspect]
     Active Substance: TOCILIZUMAB
     Route: 042
     Dates: start: 20140407
  4. PREDNISONE. [Concomitant]
     Active Substance: PREDNISONE
  5. METHOTREXATE [Concomitant]
     Active Substance: METHOTREXATE
     Route: 058
     Dates: start: 2003
  6. ACTEMRA [Suspect]
     Active Substance: TOCILIZUMAB
     Route: 042
     Dates: start: 201306
  7. METHYLPREDNISOLONE [Concomitant]
     Active Substance: METHYLPREDNISOLONE
  8. ACTEMRA [Suspect]
     Active Substance: TOCILIZUMAB
     Route: 042
     Dates: start: 201311
  9. OMEPRAZOLE. [Concomitant]
     Active Substance: OMEPRAZOLE
     Route: 048

REACTIONS (5)
  - Transaminases increased [Recovered/Resolved]
  - Drug ineffective [Unknown]
  - Anaemia [Recovered/Resolved]
  - Thrombocytosis [Recovered/Resolved]
  - Leukocytosis [Recovered/Resolved]

NARRATIVE: CASE EVENT DATE: 20140222
